FAERS Safety Report 21669606 (Version 1)
Quarter: 2022Q4

REPORT INFORMATION
  Report Type: Spontaneous
  Country: CN (occurrence: CN)
  Receive Date: 20221201
  Receipt Date: 20221201
  Transmission Date: 20230113
  Serious: Yes (Other)
  Sender: FDA-Public Use
  Company Number: CN-PFIZER INC-PV202200111923

PATIENT
  Age: 3 Week
  Sex: Female
  Weight: 7.5 kg

DRUGS (1)
  1. AZITHROMYCIN [Suspect]
     Active Substance: AZITHROMYCIN
     Indication: Pneumonia
     Dosage: 0.075 G, 1X/DAY
     Route: 041
     Dates: start: 20221118, end: 20221122

REACTIONS (1)
  - Rash neonatal [Recovered/Resolved]

NARRATIVE: CASE EVENT DATE: 20221123
